FAERS Safety Report 21501092 (Version 3)
Quarter: 2022Q4

REPORT INFORMATION
  Report Type: Report from Study
  Country: US (occurrence: US)
  Receive Date: 20221025
  Receipt Date: 20221129
  Transmission Date: 20230113
  Serious: No
  Sender: FDA-Public Use
  Company Number: US-AIMMUNE THERAPEUTICS, INC.-2022AIMT02645

PATIENT

DRUGS (3)
  1. ZENPEP [Suspect]
     Active Substance: PANCRELIPASE AMYLASE\PANCRELIPASE LIPASE\PANCRELIPASE PROTEASE
     Indication: Pancreatic failure
     Dosage: 15000 USP UNITS, 2-3 CAPSULES WITH MEALS AND 1 CAPSULE WITH SNACKS EVERY DAY
     Route: 048
     Dates: start: 202207
  2. ZENPEP [Suspect]
     Active Substance: PANCRELIPASE AMYLASE\PANCRELIPASE LIPASE\PANCRELIPASE PROTEASE
     Dosage: 15000 USP UNITS, LAST DOSE PRIOR TO EVENT
     Route: 048
     Dates: start: 2022, end: 2022
  3. ZENPEP [Suspect]
     Active Substance: PANCRELIPASE AMYLASE\PANCRELIPASE LIPASE\PANCRELIPASE PROTEASE
     Dosage: 15000 USP UNIT, DOSE DECREASED TO 1-2 CAPSULED WITH MEALS AND 1 WITH SNACKS EACH DAY
     Dates: start: 2022

REACTIONS (4)
  - Flatulence [Recovered/Resolved]
  - Discomfort [Unknown]
  - Intentional underdose [Unknown]
  - Abdominal distension [Recovered/Resolved]

NARRATIVE: CASE EVENT DATE: 20220101
